FAERS Safety Report 15643992 (Version 1)
Quarter: 2018Q4

REPORT INFORMATION
  Report Type: Spontaneous
  Country: ZA (occurrence: ZA)
  Receive Date: 20181121
  Receipt Date: 20181121
  Transmission Date: 20190205
  Serious: Yes (Hospitalization)
  Sender: FDA-Public Use
  Company Number: ZA-PFIZER INC-2018475104

PATIENT
  Age: 40 Year
  Sex: Male

DRUGS (8)
  1. CARDICOR [Suspect]
     Active Substance: BISOPROLOL
     Dosage: 2.5 MG, UNK
  2. EPANUTIN [Suspect]
     Active Substance: PHENYTOIN SODIUM
     Dosage: 100 MG, UNK
  3. EPITEC [Suspect]
     Active Substance: LAMOTRIGINE
     Dosage: 200 MG, UNK
  4. REDILEV [Suspect]
     Active Substance: LEVETIRACETAM
     Dosage: 750 MG, UNK
  5. DISPRIN CARDIOCARE [Suspect]
     Active Substance: ASPIRIN
     Dosage: 100 MG, UNK
  6. RIVOTRIL [Suspect]
     Active Substance: CLONAZEPAM
     Dosage: 2 MG, UNK
  7. ASPAVOR [Suspect]
     Active Substance: ATORVASTATIN
     Dosage: 20 MG, UNK
  8. TREPILINE [AMITRIPTYLINE] [Suspect]
     Active Substance: AMITRIPTYLINE
     Dosage: 10 MG, UNK

REACTIONS (1)
  - Cellulitis [Unknown]
